FAERS Safety Report 23315878 (Version 2)
Quarter: 2024Q1

REPORT INFORMATION
  Report Type: Report from Study
  Country: CN (occurrence: CN)
  Receive Date: 20231219
  Receipt Date: 20240118
  Transmission Date: 20240410
  Serious: No
  Sender: FDA-Public Use
  Company Number: CN-PFIZER INC-PV202300203031

PATIENT
  Age: 79 Year
  Sex: Male

DRUGS (13)
  1. NIRMATRELVIR\RITONAVIR [Suspect]
     Active Substance: NIRMATRELVIR\RITONAVIR
     Indication: COVID-19 treatment
     Dosage: [NIRMATRELVIR 300 MG]/[RITONAVIR 100 MG]; 2X/DAY
     Route: 048
     Dates: start: 20220422, end: 20220427
  2. NIRMATRELVIR\RITONAVIR [Suspect]
     Active Substance: NIRMATRELVIR\RITONAVIR
     Dosage: [NIRMATRELVIR 300 MG]/[RITONAVIR 100 MG]; 2X/DAY
     Route: 048
     Dates: start: 20220505, end: 20220510
  3. OXYGEN [Concomitant]
     Active Substance: OXYGEN
     Indication: COVID-19 treatment
     Dosage: OXYGEN INHALE
     Route: 065
     Dates: start: 20220415
  4. CEFMETAZOLE SODIUM [Concomitant]
     Active Substance: CEFMETAZOLE SODIUM
     Indication: Sepsis
     Dosage: UNK
     Route: 042
     Dates: start: 20220415, end: 20230423
  5. CEFMETAZOLE SODIUM [Concomitant]
     Active Substance: CEFMETAZOLE SODIUM
     Indication: Antiinflammatory therapy
  6. LEVOFLOXACIN [Concomitant]
     Active Substance: LEVOFLOXACIN
     Indication: Sepsis
     Dosage: UNK
     Route: 042
     Dates: start: 20220416, end: 20220423
  7. LEVOFLOXACIN [Concomitant]
     Active Substance: LEVOFLOXACIN
     Indication: Antiinflammatory therapy
  8. FLURBIPROFEN AXETIL [Concomitant]
     Active Substance: FLURBIPROFEN AXETIL
     Indication: Sedation
     Dosage: UNK
     Route: 042
     Dates: start: 20220416, end: 20220423
  9. FLURBIPROFEN AXETIL [Concomitant]
     Active Substance: FLURBIPROFEN AXETIL
     Indication: Analgesic therapy
     Dosage: UNK
     Route: 042
     Dates: start: 20220509
  10. ENTERAL NUTRITIONAL SUSPENSION (TPF) [Concomitant]
     Indication: Supportive care
     Dosage: UNK
     Route: 048
     Dates: start: 20220505, end: 20220510
  11. ENOXAPARIN SODIUM [Concomitant]
     Active Substance: ENOXAPARIN SODIUM
     Indication: Anticoagulant therapy
     Dosage: UNK
     Route: 058
     Dates: start: 20220505, end: 20220510
  12. VITAMINS [Concomitant]
     Active Substance: VITAMINS
     Indication: Supportive care
     Dosage: UNK
     Route: 042
     Dates: start: 20220416
  13. HERBALS [Concomitant]
     Active Substance: HERBALS
     Indication: COVID-19 treatment
     Dosage: UNK
     Route: 042
     Dates: start: 20220505

REACTIONS (1)
  - Overdose [Unknown]
